FAERS Safety Report 16632801 (Version 1)
Quarter: 2019Q3

REPORT INFORMATION
  Report Type: Report from Study
  Country: ES (occurrence: ES)
  Receive Date: 20190725
  Receipt Date: 20190725
  Transmission Date: 20191004
  Serious: Yes (Hospitalization)
  Sender: FDA-Public Use
  Company Number: ES-TEVA-2019-ES-1082984

PATIENT
  Age: 83 Year
  Sex: Male

DRUGS (4)
  1. OMEPRAZOL (2141A) [Suspect]
     Active Substance: OMEPRAZOLE
     Dosage: 20 MILLIGRAM DAILY;
     Route: 048
     Dates: start: 2000, end: 20190328
  2. ACENOCUMAROL (220A) [Interacting]
     Active Substance: ACENOCOUMAROL
     Indication: ATRIAL FIBRILLATION
     Route: 048
     Dates: start: 201705
  3. TIMOLOL (1158A) [Concomitant]
     Active Substance: TIMOLOL
     Indication: GLAUCOMA
     Dosage: 4 GTT DAILY;
     Route: 047
     Dates: start: 2016
  4. CIDINE 1 MG COMPRIMIDOS , 50 COMPRIMIDOS [Concomitant]
     Indication: HIATUS HERNIA
     Route: 048
     Dates: start: 201903

REACTIONS (2)
  - Drug interaction [Unknown]
  - Haemorrhage intracranial [Recovered/Resolved]

NARRATIVE: CASE EVENT DATE: 20190328
